FAERS Safety Report 15164994 (Version 1)
Quarter: 2018Q3

REPORT INFORMATION
  Report Type: Spontaneous
  Country: AT (occurrence: AT)
  Receive Date: 20180719
  Receipt Date: 20180719
  Transmission Date: 20181010
  Serious: Yes (Hospitalization, Other)
  Sender: FDA-Public Use
  Company Number: PHHY2018AT045964

PATIENT
  Sex: Male
  Weight: 80 kg

DRUGS (12)
  1. ZOLDEM [Suspect]
     Active Substance: ZOLPIDEM TARTRATE
     Indication: SLEEP DISORDER THERAPY
     Dosage: UNK
     Route: 065
  2. OLANZAPINE. [Suspect]
     Active Substance: OLANZAPINE
     Dosage: 30 MG, QD
     Route: 065
     Dates: start: 20150420, end: 20150509
  3. FLUANXOL [Suspect]
     Active Substance: FLUPENTIXOL
     Indication: PRODUCT USED FOR UNKNOWN INDICATION
     Dosage: UNK
     Route: 065
  4. RISPERDAL [Suspect]
     Active Substance: RISPERIDONE
     Indication: PRODUCT USED FOR UNKNOWN INDICATION
     Dosage: 4 MG, QD
     Route: 065
     Dates: start: 20150520, end: 2015
  5. HALDOL [Suspect]
     Active Substance: HALOPERIDOL
     Dosage: 30 DF, QD
     Route: 065
     Dates: start: 20150706, end: 20150707
  6. SOLIAN [Suspect]
     Active Substance: AMISULPRIDE
     Indication: PRODUCT USED FOR UNKNOWN INDICATION
     Dosage: UNK
     Route: 065
  7. LEPONEX [Suspect]
     Active Substance: CLOZAPINE
     Indication: PRODUCT USED FOR UNKNOWN INDICATION
     Dosage: UNK
     Route: 065
  8. OLANZAPINE. [Suspect]
     Active Substance: OLANZAPINE
     Indication: PRODUCT USED FOR UNKNOWN INDICATION
     Dosage: 20 MG, QD
     Route: 065
     Dates: start: 20150416, end: 20150419
  9. RISPERDAL [Suspect]
     Active Substance: RISPERIDONE
     Dosage: 6 MG, QD
     Route: 065
     Dates: start: 201507
  10. HALDOL [Suspect]
     Active Substance: HALOPERIDOL
     Indication: PRODUCT USED FOR UNKNOWN INDICATION
     Dosage: 40 DF, QD
     Route: 065
     Dates: start: 20150705, end: 20150706
  11. RISPERDAL [Suspect]
     Active Substance: RISPERIDONE
     Dosage: 1 OT, QD
     Route: 065
     Dates: start: 20150702, end: 201507
  12. RISPERDAL [Suspect]
     Active Substance: RISPERIDONE
     Dosage: 2 MG, QD
     Route: 065
     Dates: start: 20150705, end: 201507

REACTIONS (28)
  - Suffocation feeling [Unknown]
  - Depression [Unknown]
  - Decreased appetite [Unknown]
  - Drug ineffective [Unknown]
  - Odynophagia [Unknown]
  - Hypoaesthesia [Unknown]
  - Hallucination, auditory [Not Recovered/Not Resolved]
  - Parkinsonism [Unknown]
  - Drug administration error [Unknown]
  - Obesity [Unknown]
  - Feeling abnormal [Unknown]
  - Wound [Unknown]
  - Rash [Unknown]
  - Weight increased [Unknown]
  - Pruritus [Unknown]
  - Joint injury [Unknown]
  - Bladder injury [Unknown]
  - Pain [Unknown]
  - Tinnitus [Recovered/Resolved]
  - Fatigue [Unknown]
  - Muscle twitching [Recovered/Resolved]
  - General physical health deterioration [Unknown]
  - Palpitations [Unknown]
  - Pyrexia [Unknown]
  - Laziness [Unknown]
  - Disturbance in attention [Unknown]
  - Dysgeusia [Unknown]
  - Suicidal ideation [Not Recovered/Not Resolved]

NARRATIVE: CASE EVENT DATE: 2015
